FAERS Safety Report 15143796 (Version 1)
Quarter: 2018Q3

REPORT INFORMATION
  Report Type: Spontaneous
  Country: US (occurrence: US)
  Receive Date: 20180713
  Receipt Date: 20180713
  Transmission Date: 20181010
  Serious: No
  Sender: FDA-Public Use
  Company Number: US-AMGEN-USASP2011003593

PATIENT
  Age: 74 Year
  Sex: Female
  Weight: 75.74 kg

DRUGS (15)
  1. MAGNESIUM OXIDE. [Concomitant]
     Active Substance: MAGNESIUM OXIDE
  2. PROMETHAZINE [Concomitant]
     Active Substance: PROMETHAZINE\PROMETHAZINE HYDROCHLORIDE
  3. ERBITUX [Concomitant]
     Active Substance: CETUXIMAB
  4. PROCRIT [Suspect]
     Active Substance: ERYTHROPOIETIN
     Indication: ANAEMIA OF MALIGNANT DISEASE
     Dosage: 40 IU, QWK
     Route: 058
     Dates: start: 20101122
  5. FLOVENT HFA [Concomitant]
     Active Substance: FLUTICASONE PROPIONATE
  6. COMBIVENT [Concomitant]
     Active Substance: ALBUTEROL SULFATE\IPRATROPIUM BROMIDE
     Dosage: UNK
  7. POTASSIUM CHLORIDE. [Concomitant]
     Active Substance: POTASSIUM CHLORIDE
  8. PERCOCET                           /00446701/ [Concomitant]
     Active Substance: ACETAMINOPHEN\OXYCODONE HYDROCHLORIDE\OXYCODONE TEREPHTHALATE
  9. PREDNISONE. [Concomitant]
     Active Substance: PREDNISONE
  10. HEMOCYTE PLUS [Concomitant]
  11. HYDROCHLOROTHIAZIDE. [Concomitant]
     Active Substance: HYDROCHLOROTHIAZIDE
  12. GEMZAR                             /01215701/ [Concomitant]
  13. GLIPIZIDE. [Concomitant]
     Active Substance: GLIPIZIDE
  14. TYLENOL [Concomitant]
     Active Substance: ACETAMINOPHEN
  15. ZOFRAN [Concomitant]
     Active Substance: ONDANSETRON HYDROCHLORIDE
     Dosage: UNK

REACTIONS (4)
  - Dyspnoea [Unknown]
  - Fatigue [Unknown]
  - Malaise [Unknown]
  - Asthenia [Unknown]

NARRATIVE: CASE EVENT DATE: 20101206
